FAERS Safety Report 9062377 (Version 1)
Quarter: 2013Q1

REPORT INFORMATION
  Report Type: Spontaneous
  Country: JP (occurrence: JP)
  Receive Date: 20130213
  Receipt Date: 20130213
  Transmission Date: 20140127
  Serious: Yes (Hospitalization)
  Sender: FDA-Public Use
  Company Number: JP-GLAXOSMITHKLINE-B0801463A

PATIENT
  Age: 62 Year
  Sex: Female

DRUGS (6)
  1. LAMICTAL [Suspect]
     Indication: BIPOLAR DISORDER
     Dosage: 25MG ALTERNATE DAYS
     Route: 048
     Dates: start: 20120416, end: 20120429
  2. SODIUM VALPROATE [Concomitant]
     Indication: BIPOLAR DISORDER
     Dosage: 600MG PER DAY
     Route: 048
  3. OLANZAPINE [Concomitant]
     Indication: BIPOLAR DISORDER
     Route: 048
     Dates: start: 20120416
  4. SELENICA-R [Concomitant]
     Route: 048
  5. CYMBALTA [Concomitant]
     Route: 048
  6. HALCION [Concomitant]
     Route: 048

REACTIONS (4)
  - Drug-induced liver injury [Unknown]
  - Drug eruption [Unknown]
  - Rash generalised [Recovering/Resolving]
  - Hyperthermia [Recovered/Resolved]
